FAERS Safety Report 4497547-9 (Version None)
Quarter: 2004Q4

REPORT INFORMATION
  Report Type: 
  Country: None (occurrence: None)
  Receive Date: 20041104
  Receipt Date: 20040414
  Transmission Date: 20050328
  Serious: Yes (Hospitalization)
  Sender: FDA-Public Use
  Company Number: STA-AE-04-008

PATIENT
  Age: 51 Year
  Sex: Male

DRUGS (4)
  1. DILTIAZEM [Suspect]
     Dosage: 1.8-3.6G
  2. ACETAMINOPHEN [Concomitant]
  3. ASIPRIN [Concomitant]
  4. ISOSORBIDE NITRATE [Concomitant]

REACTIONS (18)
  - ASTHENIA [None]
  - BLOOD PRESSURE DECREASED [None]
  - BLOOD PRESSURE DIASTOLIC DECREASED [None]
  - CARDIAC ARREST [None]
  - COMA [None]
  - DRUG INEFFECTIVE [None]
  - GRAND MAL CONVULSION [None]
  - HAEMODIALYSIS [None]
  - HYPERGLYCAEMIA [None]
  - LETHARGY [None]
  - METABOLIC ACIDOSIS [None]
  - MULTIPLE DRUG OVERDOSE [None]
  - NAUSEA [None]
  - NODAL ARRHYTHMIA [None]
  - PULMONARY OEDEMA [None]
  - RENAL FAILURE ACUTE [None]
  - TREATMENT NONCOMPLIANCE [None]
  - VOMITING [None]
